FAERS Safety Report 22236810 (Version 1)
Quarter: 2023Q2

REPORT INFORMATION
  Report Type: Spontaneous
  Country: US (occurrence: US)
  Receive Date: 20230420
  Receipt Date: 20230420
  Transmission Date: 20230722
  Serious: No
  Sender: FDA-Public Use
  Company Number: US-ALLERGAN-2227742US

PATIENT
  Sex: Female

DRUGS (6)
  1. RESTASIS [Suspect]
     Active Substance: CYCLOSPORINE
     Indication: Dry eye
     Dosage: 2 GTT, BID
     Route: 047
     Dates: start: 20220823
  2. RESTASIS [Suspect]
     Active Substance: CYCLOSPORINE
     Indication: Conjunctival hyperaemia
  3. RESTASIS [Suspect]
     Active Substance: CYCLOSPORINE
     Indication: Conjunctivitis
  4. RESTASIS [Suspect]
     Active Substance: CYCLOSPORINE
     Indication: Conjunctivitis allergic
  5. PATADAY [Concomitant]
     Active Substance: OLOPATADINE HYDROCHLORIDE
     Indication: Conjunctivitis allergic
     Dosage: 1 GTT, QHS
  6. LUMIFY [Concomitant]
     Active Substance: BRIMONIDINE TARTRATE
     Indication: Conjunctivitis allergic

REACTIONS (1)
  - Off label use [Unknown]
